FAERS Safety Report 10437749 (Version 2)
Quarter: 2014Q3

REPORT INFORMATION
  Report Type: Spontaneous
  Country: US (occurrence: US)
  Receive Date: 20140908
  Receipt Date: 20140908
  Transmission Date: 20150326
  Serious: No
  Sender: FDA-Public Use
  Company Number: US-BRISTOL-MYERS SQUIBB COMPANY-19765783

PATIENT
  Age: 7 Year
  Sex: Male
  Weight: 46.26 kg

DRUGS (6)
  1. ABILIFY [Suspect]
     Active Substance: ARIPIPRAZOLE
     Indication: AGGRESSION
     Dosage: DURATION:6-7 MNTHS?DOSE REDUCED TO 15MG AND FURTHER?1/2 TAB IN AM AND 1/2 TAB IN PM
     Route: 048
  2. ABILIFY [Suspect]
     Active Substance: ARIPIPRAZOLE
     Indication: IRRITABILITY
     Dosage: DURATION:6-7 MNTHS?DOSE REDUCED TO 15MG AND FURTHER?1/2 TAB IN AM AND 1/2 TAB IN PM
     Route: 048
  3. RISPERDAL [Suspect]
     Active Substance: RISPERIDONE
  4. ABILIFY [Suspect]
     Active Substance: ARIPIPRAZOLE
     Indication: AUTISM SPECTRUM DISORDER
     Dosage: DURATION:6-7 MNTHS?DOSE REDUCED TO 15MG AND FURTHER?1/2 TAB IN AM AND 1/2 TAB IN PM
     Route: 048
  5. ABILIFY [Suspect]
     Active Substance: ARIPIPRAZOLE
     Indication: AGITATION
     Dosage: DURATION:6-7 MNTHS?DOSE REDUCED TO 15MG AND FURTHER?1/2 TAB IN AM AND 1/2 TAB IN PM
     Route: 048
  6. ZOLOFT [Suspect]
     Active Substance: SERTRALINE HYDROCHLORIDE
     Indication: OBSESSIVE-COMPULSIVE DISORDER
     Dosage: 50MG
     Dates: start: 201212

REACTIONS (3)
  - Anger [Not Recovered/Not Resolved]
  - Weight increased [Not Recovered/Not Resolved]
  - Increased appetite [Not Recovered/Not Resolved]
